FAERS Safety Report 12985105 (Version 2)
Quarter: 2016Q4

REPORT INFORMATION
  Report Type: Spontaneous
  Country: CO (occurrence: CO)
  Receive Date: 20161129
  Receipt Date: 20161226
  Transmission Date: 20170207
  Serious: Yes (Death, Hospitalization, Other)
  Sender: FDA-Public Use
  Company Number: CO-BAXTER-2016BAX059404

PATIENT
  Age: 76 Year
  Sex: Female
  Weight: 78 kg

DRUGS (1)
  1. DIANEAL PD-2 WITH DEXTROSE [Suspect]
     Active Substance: CALCIUM CHLORIDE\DEXTROSE\MAGNESIUM CHLORIDE\SODIUM CHLORIDE\SODIUM LACTATE
     Indication: PERITONEAL DIALYSIS
     Route: 033
     Dates: end: 20161210

REACTIONS (7)
  - Pleural effusion [Unknown]
  - Peritonitis bacterial [Recovered/Resolved]
  - Peritoneal dialysis complication [Unknown]
  - Bacterial translocation [Unknown]
  - Urinary tract infection [Unknown]
  - Cardiac disorder [Fatal]
  - Hypotension [Unknown]

NARRATIVE: CASE EVENT DATE: 2016
